FAERS Safety Report 7341180-8 (Version None)
Quarter: 2011Q1

REPORT INFORMATION
  Report Type: 
  Country: None (occurrence: None)
  Receive Date: 20110309
  Receipt Date: 20110302
  Transmission Date: 20110831
  Serious: Yes (Hospitalization)
  Sender: FDA-Public Use
  Company Number: B0704093A

PATIENT
  Sex: Male
  Weight: 57 kg

DRUGS (15)
  1. ACIDLESS [Concomitant]
     Dosage: 24ML PER DAY
     Route: 048
     Dates: end: 20101203
  2. RAMELTEON [Concomitant]
     Dosage: 2IUAX PER DAY
     Route: 042
     Dates: start: 20101115, end: 20101116
  3. NEUTROGIN [Concomitant]
     Dates: start: 20101119, end: 20101202
  4. MUCOSTA [Concomitant]
     Dosage: 300MG PER DAY
     Route: 048
  5. METHYCOBAL [Concomitant]
     Dosage: 1500MCG PER DAY
     Route: 048
  6. PARIET [Concomitant]
     Dosage: 10MG PER DAY
     Route: 048
  7. ENTERONON-R [Concomitant]
     Dosage: 3IUAX PER DAY
     Route: 048
     Dates: end: 20101217
  8. CHINESE MEDICINE [Concomitant]
     Dosage: 3IUAX PER DAY
     Route: 048
     Dates: start: 20101116, end: 20101118
  9. PURSENNID [Concomitant]
     Dosage: 2IUAX PER DAY
     Route: 048
     Dates: end: 20101127
  10. EMEND [Concomitant]
     Route: 048
     Dates: start: 20101115, end: 20101117
  11. BAKTAR [Concomitant]
     Dosage: 1IUAX PER DAY
     Route: 048
  12. ALLOID G [Concomitant]
     Dosage: 30ML PER DAY
     Route: 048
     Dates: end: 20101124
  13. ALKERAN [Suspect]
     Indication: STEM CELL TRANSPLANT
     Dosage: 160MG PER DAY
     Route: 042
     Dates: start: 20101115, end: 20101116
  14. MAGMITT [Concomitant]
     Dosage: 1980MG PER DAY
     Route: 048
     Dates: end: 20101208
  15. HEPARIN [Concomitant]
     Route: 042
     Dates: start: 20101115, end: 20101116

REACTIONS (1)
  - DECREASED APPETITE [None]
